FAERS Safety Report 5595087-7 (Version None)
Quarter: 2008Q1

REPORT INFORMATION
  Report Type: 
  Country: None (occurrence: None)
  Receive Date: 20080117
  Receipt Date: 20080110
  Transmission Date: 20080703
  Serious: Yes (Life-Threatening, Hospitalization)
  Sender: FDA-Public Use
  Company Number: IT-SANOFI-SYNTHELABO-F01200800074

PATIENT
  Sex: Male

DRUGS (8)
  1. GLYCERYL TRINITRATE [Concomitant]
     Indication: ANGINA PECTORIS
     Dosage: 10 UNK
     Route: 048
     Dates: start: 20020101
  2. FUROSEMIDE SODIUM [Concomitant]
     Indication: OEDEMA
     Dosage: 25 MG
     Dates: start: 19920101
  3. GLYBURIDE AND METFORMIN HCL [Concomitant]
     Indication: DIABETES MELLITUS
     Dosage: UNK
     Route: 048
     Dates: start: 19920101
  4. RAMIPRIL [Concomitant]
     Indication: HYPERTENSION
     Dosage: 5 MG
     Route: 048
     Dates: start: 20020101
  5. AMIODARONE HCL [Concomitant]
     Indication: ATRIAL FIBRILLATION
     Dosage: 200 MG
     Route: 048
     Dates: start: 19970101
  6. DIGOXIN [Concomitant]
     Indication: POSITIVE CARDIAC INOTROPIC EFFECT
     Dosage: 0.125 MG
     Route: 048
     Dates: start: 19920101
  7. BICALUTAMIDE [Suspect]
     Route: 048
     Dates: start: 20070607, end: 20070706
  8. ELIGARD [Suspect]
     Indication: PROSTATE CANCER
     Route: 058
     Dates: start: 20070607, end: 20070607

REACTIONS (1)
  - CARDIAC FAILURE [None]
